FAERS Safety Report 24113314 (Version 1)
Quarter: 2024Q3

REPORT INFORMATION
  Report Type: Spontaneous
  Country: DE (occurrence: DE)
  Receive Date: 20240719
  Receipt Date: 20240719
  Transmission Date: 20241017
  Serious: Yes (Other)
  Sender: TEVA
  Company Number: DE-TEVA-VS-3137742

PATIENT
  Age: 51 Year
  Sex: Male

DRUGS (4)
  1. ATORVASTATIN [Suspect]
     Active Substance: ATORVASTATIN
     Indication: Hyperlipidaemia
     Dosage: DAILY, RATIOPHARM
     Route: 048
     Dates: start: 2023, end: 202312
  2. ALLOPURINOL [Concomitant]
     Active Substance: ALLOPURINOL
     Indication: Product used for unknown indication
     Dosage: 300 (UNITS NOT SPECIFIED)
     Route: 065
  3. ASPIRIN [Concomitant]
     Active Substance: ASPIRIN
     Indication: Product used for unknown indication
     Dosage: 100 (UNITS NOT REPORTED)
     Route: 065
  4. AMLODIPINE\VALSARTAN [Concomitant]
     Active Substance: AMLODIPINE\VALSARTAN
     Indication: Product used for unknown indication
     Dosage: 5MG/80MG
     Route: 065

REACTIONS (6)
  - Left ventricular failure [Unknown]
  - Influenza like illness [Unknown]
  - Abdominal pain upper [Unknown]
  - Nausea [Unknown]
  - Fatigue [Unknown]
  - Hepatic enzyme increased [Unknown]

NARRATIVE: CASE EVENT DATE: 20230101
